FAERS Safety Report 6765713-5 (Version None)
Quarter: 2010Q2

REPORT INFORMATION
  Report Type: 
  Country: None (occurrence: None)
  Receive Date: 20100610
  Receipt Date: 20100610
  Transmission Date: 20101027
  Serious: Yes (Other)
  Sender: FDA-Public Use
  Company Number: None

PATIENT
  Age: 69 Year
  Sex: Female
  Weight: 65.7716 kg

DRUGS (2)
  1. APOTEX FENTANYL TRANSDERMAL SYSTEM MAN. BY HISAMITSU [Suspect]
     Indication: PAIN
     Dosage: 5 BOXES 100 MCG/HR 72 HRS
     Dates: start: 20100422
  2. APOTEX FENTANYL TRANSDERMAL SYSTEM MAN. BY HISAMITSU [Suspect]
     Dosage: 2 BOXES 25 MCG/HR 72 HRS
     Dates: start: 20100528

REACTIONS (6)
  - APPLICATION SITE EROSION [None]
  - APPLICATION SITE REACTION [None]
  - APPLICATION SITE VESICLES [None]
  - COMPLICATION OF DEVICE REMOVAL [None]
  - DRUG EFFECT DECREASED [None]
  - ECONOMIC PROBLEM [None]
